FAERS Safety Report 16668992 (Version 2)
Quarter: 2019Q3

REPORT INFORMATION
  Report Type: Report from Study
  Country: None (occurrence: IL)
  Receive Date: 20190805
  Receipt Date: 20190907
  Transmission Date: 20191004
  Serious: No
  Sender: FDA-Public Use
  Company Number: IL-ABBVIE-19K-082-2871134-00

PATIENT
  Age: 66 Year
  Sex: Male

DRUGS (1)
  1. HUMIRA [Suspect]
     Active Substance: ADALIMUMAB
     Indication: PSORIATIC ARTHROPATHY
     Route: 058
     Dates: start: 20190728

REACTIONS (2)
  - Agitation [Unknown]
  - Dizziness [Recovered/Resolved]

NARRATIVE: CASE EVENT DATE: 20190728
